FAERS Safety Report 5836390-2 (Version None)
Quarter: 2008Q3

REPORT INFORMATION
  Report Type: 
  Country: None (occurrence: None)
  Receive Date: 20080731
  Receipt Date: 20080604
  Transmission Date: 20090109
  Serious: No
  Sender: FDA-Public Use
  Company Number: US200806003863

PATIENT
  Age: 51 Year
  Sex: Female
  Weight: 144.7 kg

DRUGS (13)
  1. BYETTA [Suspect]
     Indication: TYPE 2 DIABETES MELLITUS
     Dosage: 10 UG, 2/D, SUBCUTANEOUS
     Route: 058
     Dates: start: 20050101
  2. VITAMIN E /001105/ (TOCOPHEROL) [Concomitant]
  3. ASPIRIN [Concomitant]
  4. CARISOPRODOL [Concomitant]
  5. OXYCODONE HCL [Concomitant]
  6. AMARYL [Concomitant]
  7. XANAX [Concomitant]
  8. SPIRONOLACTONE [Concomitant]
  9. CAPTOPRIL [Concomitant]
  10. CELEBREX [Concomitant]
  11. EFFEXOR [Concomitant]
  12. LEVOXYL [Concomitant]
  13. POTASSIUM (POTASSIUM) [Concomitant]

REACTIONS (3)
  - ARTHRITIS [None]
  - INJECTION SITE HAEMATOMA [None]
  - NAUSEA [None]
